FAERS Safety Report 8176854-2 (Version None)
Quarter: 2012Q1

REPORT INFORMATION
  Report Type: 
  Country: None (occurrence: None)
  Receive Date: 20120124
  Receipt Date: 20110617
  Transmission Date: 20120608
  Serious: Yes (Hospitalization)
  Sender: FDA-Public Use
  Company Number: WAES 1106USA02489

PATIENT

DRUGS (1)
  1. INVANZ [Suspect]
     Dosage: 1 GM/DAILY/IV
     Route: 042

REACTIONS (1)
  - HALLUCINATION [None]
